FAERS Safety Report 9382961 (Version 1)
Quarter: 2013Q3

REPORT INFORMATION
  Report Type: Spontaneous
  Country: ES (occurrence: ES)
  Receive Date: 20130703
  Receipt Date: 20130703
  Transmission Date: 20140515
  Serious: Yes (Disabling)
  Sender: FDA-Public Use
  Company Number: ES-ABBOTT-13P-144-1112516-00

PATIENT
  Sex: Female

DRUGS (1)
  1. CHIROCAINE [Suspect]
     Indication: EPIDURAL ANAESTHESIA
     Dosage: 8 ML/HOUR PLUS EXTRA BOLUS
     Dates: start: 201306, end: 201306

REACTIONS (4)
  - Muscular weakness [Not Recovered/Not Resolved]
  - Mobility decreased [Not Recovered/Not Resolved]
  - Paresis [Not Recovered/Not Resolved]
  - Complication of delivery [Unknown]
